FAERS Safety Report 15002969 (Version 1)
Quarter: 2018Q2

REPORT INFORMATION
  Report Type: Report from Study
  Country: CA (occurrence: CA)
  Receive Date: 20180612
  Receipt Date: 20180612
  Transmission Date: 20180711
  Serious: Yes (Other)
  Sender: FDA-Public Use
  Company Number: CA-HLSUS-2018-CA-000900

PATIENT
  Age: 23 Year
  Sex: Female

DRUGS (2)
  1. OLANZAPINE. [Suspect]
     Active Substance: OLANZAPINE
     Indication: SCHIZOPHRENIA
  2. ZUCLOPENTHIXOL? DECANOATE [Suspect]
     Active Substance: ZUCLOPENTHIXOL DECANOATE
     Indication: SCHIZOPHRENIA

REACTIONS (15)
  - Dystonia [Unknown]
  - Sexual dysfunction [Unknown]
  - Condition aggravated [Unknown]
  - Dyskinesia [Unknown]
  - Blood prolactin abnormal [Unknown]
  - Metabolic disorder [Unknown]
  - Suicide attempt [Unknown]
  - Disturbance in social behaviour [Unknown]
  - Insurance issue [Unknown]
  - Personality change [Unknown]
  - Adverse drug reaction [Unknown]
  - Drug ineffective [Unknown]
  - Sedation [Unknown]
  - Anosognosia [Unknown]
  - Blood glucose increased [Unknown]
